FAERS Safety Report 17483718 (Version 1)
Quarter: 2020Q1

REPORT INFORMATION
  Report Type: Spontaneous
  Country: US (occurrence: US)
  Receive Date: 20200229
  Receipt Date: 20200229
  Transmission Date: 20200409
  Serious: No
  Sender: FDA-Public Use
  Company Number: US-JNJFOC-20200210849

PATIENT
  Age: 43 Year
  Sex: Male
  Weight: 71.73 kg

DRUGS (1)
  1. MENS ROGAINE EXTRA STRENGTH [Suspect]
     Active Substance: MINOXIDIL
     Indication: ALOPECIA
     Dosage: DOSE:HALF A CAPFUL AND FREQUENCY: ONCE A DAY?THE PRODUCT IS LAST ADMINISTERED ON 02/FEB/2020.
     Route: 061
     Dates: start: 20200131

REACTIONS (4)
  - Underdose [Unknown]
  - Application site rash [Not Recovered/Not Resolved]
  - Skin fissures [Not Recovered/Not Resolved]
  - Inappropriate schedule of product administration [Unknown]

NARRATIVE: CASE EVENT DATE: 20200131
